FAERS Safety Report 12142071 (Version 1)
Quarter: 2016Q1

REPORT INFORMATION
  Report Type: Spontaneous
  Country: CA (occurrence: CA)
  Receive Date: 20160303
  Receipt Date: 20160303
  Transmission Date: 20160526
  Serious: Yes (Hospitalization)
  Sender: FDA-Public Use
  Company Number: CA-TEVA-639528ACC

PATIENT
  Age: 22 Year
  Sex: Female
  Weight: 55.84 kg

DRUGS (5)
  1. VENLAFAXINE XR [Suspect]
     Active Substance: VENLAFAXINE HYDROCHLORIDE
     Indication: ANXIETY
     Dosage: 75 MILLIGRAM DAILY;
     Route: 048
  2. TAMIFLU [Concomitant]
     Active Substance: OSELTAMIVIR PHOSPHATE
  3. DEXTROMETHORPHAN [Concomitant]
     Active Substance: DEXTROMETHORPHAN
  4. LORAZEPAM. [Concomitant]
     Active Substance: LORAZEPAM
  5. TRI-CYCLEN TABLETS - 28-DAY [Concomitant]

REACTIONS (14)
  - Asterixis [Recovered/Resolved]
  - Nausea [Recovered/Resolved]
  - Dysarthria [Recovered/Resolved]
  - Ocular icterus [Recovered/Resolved]
  - Ascites [Recovered/Resolved]
  - Confusional state [Recovered/Resolved]
  - Hypersomnia [Recovered/Resolved]
  - Hepatitis [Recovered/Resolved]
  - Ultrasound abdomen abnormal [Recovered/Resolved]
  - Vomiting [Recovered/Resolved]
  - Jaundice [Recovered/Resolved]
  - Fatigue [Recovered/Resolved]
  - Influenza like illness [Recovered/Resolved]
  - Pruritus [Recovered/Resolved]
